FAERS Safety Report 15522256 (Version 1)
Quarter: 2018Q4

REPORT INFORMATION
  Report Type: Report from Study
  Country: US (occurrence: US)
  Receive Date: 20181017
  Receipt Date: 20181017
  Transmission Date: 20190205
  Serious: Yes (Hospitalization)
  Sender: FDA-Public Use
  Company Number: US-AMGEN-USASL2018110504

PATIENT
  Age: 77 Year
  Sex: Female

DRUGS (3)
  1. REPATHA [Suspect]
     Active Substance: EVOLOCUMAB
     Indication: TYPE 1 DIABETES MELLITUS
  2. REPATHA [Suspect]
     Active Substance: EVOLOCUMAB
     Indication: ARTERIOSCLEROSIS CORONARY ARTERY
     Dosage: 140 MG, Q2WK
     Route: 058
  3. REPATHA [Suspect]
     Active Substance: EVOLOCUMAB
     Indication: HYPERLIPIDAEMIA

REACTIONS (1)
  - Urinary tract infection [Unknown]

NARRATIVE: CASE EVENT DATE: 2018
